FAERS Safety Report 13188624 (Version 1)
Quarter: 2017Q1

REPORT INFORMATION
  Report Type: Spontaneous
  Country: US (occurrence: US)
  Receive Date: 20170204
  Receipt Date: 20170204
  Transmission Date: 20170428
  Serious: Yes (Other)
  Sender: FDA-Public Use
  Company Number: None

PATIENT
  Age: 30 Year
  Sex: Female
  Weight: 45.9 kg

DRUGS (5)
  1. CLINDAMYCIN. [Concomitant]
     Active Substance: CLINDAMYCIN
  2. TRETINOIN. [Concomitant]
     Active Substance: TRETINOIN
  3. SERTRALINE HCL 50MG [Suspect]
     Active Substance: SERTRALINE HYDROCHLORIDE
     Indication: ANXIETY
     Dosage: ?          QUANTITY:1 TABLET(S);?
     Route: 048
     Dates: start: 20160722, end: 20160724
  4. VITAMIN D [Concomitant]
     Active Substance: CHOLECALCIFEROL
  5. BLISOVI FE 1/20 [Concomitant]
     Active Substance: ETHINYL ESTRADIOL\NORETHINDRONE ACETATE

REACTIONS (6)
  - Insomnia [None]
  - Decreased appetite [None]
  - Weight decreased [None]
  - Vomiting [None]
  - Panic attack [None]
  - Palpitations [None]

NARRATIVE: CASE EVENT DATE: 20160722
